FAERS Safety Report 19278366 (Version 1)
Quarter: 2021Q2

REPORT INFORMATION
  Report Type: Spontaneous
  Country: US (occurrence: US)
  Receive Date: 20210520
  Receipt Date: 20210520
  Transmission Date: 20210717
  Serious: Yes (Hospitalization)
  Sender: FDA-Public Use
  Company Number: None

PATIENT
  Age: 26 Year
  Sex: Male
  Weight: 78.6 kg

DRUGS (8)
  1. OMEPRAZOLE. [Concomitant]
     Active Substance: OMEPRAZOLE
  2. PREDNISONE. [Concomitant]
     Active Substance: PREDNISONE
  3. DESIPRAMINE [Concomitant]
     Active Substance: DESIPRAMINE
  4. LACTOBACILLUS 3 FOS/PANTETHINE [Concomitant]
  5. MELATONIN [Concomitant]
     Active Substance: MELATONIN
  6. BUDESONIDE. [Concomitant]
     Active Substance: BUDESONIDE
  7. STELARA [Suspect]
     Active Substance: USTEKINUMAB
  8. VENLAFAXINE [Concomitant]
     Active Substance: VENLAFAXINE HYDROCHLORIDE

REACTIONS (3)
  - Intestinal fistula [None]
  - Post procedural complication [None]
  - Abdominal abscess [None]

NARRATIVE: CASE EVENT DATE: 20200209
